FAERS Safety Report 7000299 (Version 6)
Quarter: 2012Q4

REPORT INFORMATION
  Report Type: 
  Country: US (occurrence: US)
  Receive Date: 20090522
  Receipt Date: 20120910
  Transmission Date: 20130627
  Serious: Yes (Hospitalization)
  Sender: FDA-Public Use
  Company Number: US-BIOGENIDEC-2009BI013293

PATIENT
  Age: 39 Year
  Sex: Female

DRUGS (4)
  1. AVONEX [Suspect]
     Indication: MULTIPLE SCLEROSIS
     Route: 030
     Dates: start: 20090320, end: 200905
  2. PROZAC [Concomitant]
     Indication: PRODUCT USED FOR UNKNOWN INDICATION
  3. DEPAKOTE [Concomitant]
     Indication: GRAND MAL CONVULSION
  4. KLONOPIN [Concomitant]
     Indication: GRAND MAL CONVULSION

REACTIONS (20)
  - Dyspnoea [Not Recovered/Not Resolved]
  - Asthma [Recovered/Resolved]
  - Blood pressure decreased [Recovered/Resolved]
  - Cardiac arrest [Recovered/Resolved]
  - Respiratory distress [Unknown]
  - Pneumonia aspiration [Unknown]
  - Loss of consciousness [Recovered/Resolved]
  - Grand mal convulsion [Recovered/Resolved]
  - Cognitive disorder [Not Recovered/Not Resolved]
  - Visual impairment [Recovered/Resolved]
  - Procedural pain [Recovered/Resolved]
  - Memory impairment [Unknown]
  - Speech disorder [Unknown]
  - Migraine [Unknown]
  - Fall [Recovered/Resolved]
  - Gait disturbance [Recovered/Resolved]
  - Tension headache [Unknown]
  - Pain [Not Recovered/Not Resolved]
  - Depression [Not Recovered/Not Resolved]
  - Emotional distress [Unknown]
